FAERS Safety Report 12347255 (Version 1)
Quarter: 2016Q2

REPORT INFORMATION
  Report Type: Spontaneous
  Country: FR (occurrence: FR)
  Receive Date: 20160509
  Receipt Date: 20160509
  Transmission Date: 20160815
  Serious: Yes (Death, Hospitalization)
  Sender: FDA-Public Use
  Company Number: FR-PFIZER INC-2016241190

PATIENT
  Age: 50 Year
  Sex: Female

DRUGS (2)
  1. IXPRIM [Suspect]
     Active Substance: ACETAMINOPHEN\TRAMADOL HYDROCHLORIDE
     Indication: BACK PAIN
     Dosage: UNK
     Route: 048
     Dates: start: 201603, end: 20160402
  2. ADVIL [Suspect]
     Active Substance: IBUPROFEN
     Indication: BACK PAIN
     Dosage: UNK
     Route: 048
     Dates: start: 201603, end: 20160402

REACTIONS (13)
  - Purpura fulminans [Fatal]
  - Photophobia [Fatal]
  - Chest X-ray abnormal [Unknown]
  - Sinus tachycardia [Unknown]
  - Hypothermia [Fatal]
  - Pain in extremity [Unknown]
  - Phonophobia [Fatal]
  - Hypotension [Fatal]
  - Multiple organ dysfunction syndrome [Fatal]
  - Pyrexia [Fatal]
  - General physical health deterioration [Unknown]
  - Vomiting [Fatal]
  - Tonsillitis [Unknown]

NARRATIVE: CASE EVENT DATE: 201604
